FAERS Safety Report 26027213 (Version 1)
Quarter: 2025Q4

REPORT INFORMATION
  Report Type: Spontaneous
  Country: US (occurrence: US)
  Receive Date: 20251111
  Receipt Date: 20251111
  Transmission Date: 20260118
  Serious: Yes (Other)
  Sender: SANOFI AVENTIS
  Company Number: US-SA-2025SA326571

PATIENT
  Age: 57 Year
  Sex: Male

DRUGS (7)
  1. LANTUS [Suspect]
     Active Substance: INSULIN GLARGINE
     Indication: Type 2 diabetes mellitus
     Dosage: UNK
     Dates: start: 20230101
  2. LANTUS [Suspect]
     Active Substance: INSULIN GLARGINE
     Indication: Glycosylated haemoglobin increased
  3. OZEMPIC [Suspect]
     Active Substance: SEMAGLUTIDE
     Indication: Type 2 diabetes mellitus
     Dosage: UNK
     Route: 058
     Dates: start: 20220801
  4. OZEMPIC [Suspect]
     Active Substance: SEMAGLUTIDE
     Indication: Glycosylated haemoglobin increased
     Dosage: 1 MG
     Route: 058
     Dates: end: 20230101
  5. OZEMPIC [Suspect]
     Active Substance: SEMAGLUTIDE
     Dosage: 0.25 MG
     Route: 058
     Dates: start: 20251007
  6. NOVOLOG [Suspect]
     Active Substance: INSULIN ASPART
     Indication: Type 2 diabetes mellitus
     Dosage: 20 IU
     Route: 058
     Dates: start: 20230101
  7. NOVOLOG [Suspect]
     Active Substance: INSULIN ASPART
     Indication: Glycosylated haemoglobin increased

REACTIONS (2)
  - Bipolar disorder [Not Recovered/Not Resolved]
  - Depression suicidal [Not Recovered/Not Resolved]

NARRATIVE: CASE EVENT DATE: 20230601
